FAERS Safety Report 7669392-4 (Version None)
Quarter: 2011Q3

REPORT INFORMATION
  Report Type: 
  Country: None (occurrence: None)
  Receive Date: 20110808
  Receipt Date: 20110729
  Transmission Date: 20111222
  Serious: Yes (Hospitalization)
  Sender: FDA-Public Use
  Company Number: FR-ROCHE-793406

PATIENT
  Sex: Male

DRUGS (7)
  1. RIBAVIRIN [Suspect]
     Indication: HEPATITIS C
     Dosage: FREQUENCY REPORTED AS : DAILY
     Route: 048
     Dates: start: 20110318
  2. METHADONE HYDROCHLORIDE [Concomitant]
     Dosage: DRUG RECEIVING FOR MORE THAN 10 YEARS.
     Route: 048
  3. CLONAZEPAM [Concomitant]
  4. ACTOS [Concomitant]
     Indication: INSULIN RESISTANCE
     Route: 048
     Dates: start: 20101220
  5. PEGINTERFERON ALFA-2A [Suspect]
     Indication: HEPATITIS C
     Route: 058
     Dates: start: 20110318
  6. INTELENCE [Concomitant]
     Route: 048
     Dates: start: 20100401
  7. ISENTRESS [Concomitant]
     Route: 048
     Dates: start: 20101220

REACTIONS (1)
  - THROMBOPHLEBITIS [None]
